FAERS Safety Report 21273373 (Version 1)
Quarter: 2022Q3

REPORT INFORMATION
  Report Type: Report from Study
  Country: US (occurrence: None)
  Receive Date: 20220831
  Receipt Date: 20220831
  Transmission Date: 20221026
  Serious: Yes (Hospitalization)
  Sender: FDA-Public Use
  Company Number: US-Eisai Medical Research-EC-2022-121631

PATIENT
  Age: 67 Year
  Sex: Male

DRUGS (4)
  1. LENVATINIB [Suspect]
     Active Substance: LENVATINIB
     Indication: Nasal sinus cancer
     Route: 048
     Dates: start: 20220308, end: 202203
  2. LENVATINIB [Suspect]
     Active Substance: LENVATINIB
     Indication: Neurofibrosarcoma
     Route: 048
     Dates: start: 20220329, end: 20220815
  3. PEMBROLIZUMAB [Suspect]
     Active Substance: PEMBROLIZUMAB
     Indication: Nasal sinus cancer
     Route: 041
     Dates: start: 20220308, end: 20220621
  4. PEMBROLIZUMAB [Suspect]
     Active Substance: PEMBROLIZUMAB
     Indication: Neurofibrosarcoma

REACTIONS (3)
  - Colitis [Recovered/Resolved]
  - Periorbital infection [Unknown]
  - Osteomyelitis [Unknown]

NARRATIVE: CASE EVENT DATE: 20220704
